FAERS Safety Report 24449624 (Version 1)
Quarter: 2024Q4

REPORT INFORMATION
  Report Type: Spontaneous
  Country: US (occurrence: None)
  Receive Date: 20241017
  Receipt Date: 20241017
  Transmission Date: 20250114
  Serious: Yes (Other)
  Sender: UNICHEM
  Company Number: US-Unichem Pharmaceuticals (USA) Inc-UCM202410-001330

PATIENT
  Age: 66 Year
  Sex: Female

DRUGS (2)
  1. BACLOFEN [Suspect]
     Active Substance: BACLOFEN
     Indication: Muscle spasticity
     Dosage: UNKNOWN
     Route: 048
  2. BACLOFEN [Suspect]
     Active Substance: BACLOFEN
     Indication: Pruritus
     Dosage: UNKNOWN
     Route: 037

REACTIONS (4)
  - Toxicity to various agents [Unknown]
  - Therapy cessation [Unknown]
  - Lethargy [Unknown]
  - Drug effective for unapproved indication [Unknown]
